FAERS Safety Report 4716336-0 (Version None)
Quarter: 2005Q3

REPORT INFORMATION
  Report Type: 
  Country: None (occurrence: None)
  Receive Date: 20050711
  Receipt Date: 20050319
  Transmission Date: 20060218
  Serious: Yes (Other)
  Sender: FDA-Public Use
  Company Number: ENTC2005-0015

PATIENT
  Age: 69 Year
  Sex: Female

DRUGS (8)
  1. STALEVO 100 [Suspect]
     Indication: PARKINSON'S DISEASE
     Dosage: 100MG/25MG/200MG QD, ORAL
     Route: 048
     Dates: start: 20050101
  2. HYZAAR (UNKNOWN) [Concomitant]
  3. SINEMET [Concomitant]
  4. MIRAPEX (UNKNOWN) [Concomitant]
  5. THIOTHIXENE (UNKNOWN) [Concomitant]
  6. TOPROL-XL [Concomitant]
  7. PREVACID (UNKNOWN) [Concomitant]
  8. PRAVACHOL [Concomitant]

REACTIONS (1)
  - BLOOD PRESSURE INCREASED [None]
